FAERS Safety Report 4797293-8 (Version None)
Quarter: 2005Q4

REPORT INFORMATION
  Report Type: 
  Country: None (occurrence: None)
  Receive Date: 20051013
  Receipt Date: 20051008
  Transmission Date: 20060501
  Serious: Yes (Other)
  Sender: FDA-Public Use
  Company Number: PHFR2005GB03145

PATIENT
  Sex: Female

DRUGS (6)
  1. AMOXICILLIN [Suspect]
     Route: 065
  2. ANAFRANIL [Suspect]
     Route: 065
  3. LACTULOSE [Suspect]
     Route: 065
  4. CYCLIZINE [Suspect]
     Route: 065
  5. GAVISCON [Suspect]
     Route: 065
  6. SENNA [Suspect]
     Route: 065

REACTIONS (8)
  - APGAR SCORE LOW [None]
  - BLOOD PRESSURE INCREASED [None]
  - CONSTIPATION [None]
  - DYSPEPSIA [None]
  - GASTROOESOPHAGEAL REFLUX DISEASE [None]
  - PRE-ECLAMPSIA [None]
  - PREMATURE BABY [None]
  - VOMITING [None]
